FAERS Safety Report 8926137 (Version 1)
Quarter: 2012Q4

REPORT INFORMATION
  Report Type: 
  Country: DE (occurrence: DE)
  Receive Date: 20121127
  Receipt Date: 20121127
  Transmission Date: 20130627
  Serious: Yes (Other)
  Sender: FDA-Public Use
  Company Number: DE-AMGEN-DEUSP2012073899

PATIENT
  Age: 41 Year
  Sex: Female

DRUGS (3)
  1. NEULASTA [Suspect]
     Indication: BREAST CANCER
     Dosage: UNK
  2. DOCETAXEL [Concomitant]
     Dosage: UNK
  3. HERCEPTIN [Concomitant]
     Dosage: UNK

REACTIONS (2)
  - Bone pain [Unknown]
  - White blood cell count increased [Unknown]
